FAERS Safety Report 19362845 (Version 1)
Quarter: 2021Q2

REPORT INFORMATION
  Report Type: Spontaneous
  Country: US (occurrence: US)
  Receive Date: 20210603
  Receipt Date: 20210603
  Transmission Date: 20210717
  Serious: Yes (Hospitalization)
  Sender: FDA-Public Use
  Company Number: US-EIGER BIOPHARMACEUTICALS-EIG-2021-000005

PATIENT

DRUGS (1)
  1. ZOKINVY [Suspect]
     Active Substance: LONAFARNIB
     Indication: PROGERIA
     Dosage: 75 MG, CAPSULE, TWICE DAILY (BID)
     Route: 048
     Dates: start: 20210319

REACTIONS (2)
  - Hypoaesthesia [Unknown]
  - Migraine [Unknown]

NARRATIVE: CASE EVENT DATE: 20210507
